FAERS Safety Report 9486931 (Version 1)
Quarter: 2013Q3

REPORT INFORMATION
  Report Type: Spontaneous
  Country: US (occurrence: None)
  Receive Date: 20130827
  Receipt Date: 20130827
  Transmission Date: 20140515
  Serious: Yes (Other)
  Sender: FDA-Public Use
  Company Number: VAL_02687_2013

PATIENT
  Sex: Female

DRUGS (3)
  1. LOPRESSOR [Suspect]
     Indication: HYPERTENSION
     Dates: start: 201307, end: 2013
  2. CLONIDINE (UNKNOWN) [Concomitant]
  3. THYROID MEDICATION (UNKNOWN) [Concomitant]

REACTIONS (7)
  - Drug hypersensitivity [None]
  - Eye swelling [None]
  - Urticaria [None]
  - Pruritus [None]
  - Wheezing [None]
  - Acne [None]
  - Drug ineffective [None]
